FAERS Safety Report 4523369-6 (Version None)
Quarter: 2004Q4

REPORT INFORMATION
  Report Type: 
  Country: None (occurrence: None)
  Receive Date: 20041209
  Receipt Date: 20041129
  Transmission Date: 20050328
  Serious: No
  Sender: FDA-Public Use
  Company Number: US-2004-032344

PATIENT
  Age: 52 Year
  Sex: Female
  Weight: 98.4 kg

DRUGS (9)
  1. BETASERON [Suspect]
     Indication: MULTIPLE SCLEROSIS
     Dosage: 9.6 MIU, EVERY 2D, SUBCUTANEOUS
     Route: 058
     Dates: start: 20040201, end: 20040831
  2. NEURONTIN [Concomitant]
  3. PROZAC [Concomitant]
  4. DITROPAN XL [Concomitant]
  5. KLONOPIN [Concomitant]
  6. ZOCOR [Concomitant]
  7. ZETIA [Concomitant]
  8. TYLENOL (CAPLET) [Concomitant]
  9. ALEVE [Concomitant]

REACTIONS (10)
  - ABASIA [None]
  - ANOREXIA [None]
  - CHEST DISCOMFORT [None]
  - CONDITION AGGRAVATED [None]
  - FLANK PAIN [None]
  - HEPATITIS C [None]
  - MULTIPLE SCLEROSIS [None]
  - OCCUPATIONAL PROBLEM ENVIRONMENTAL [None]
  - SINUSITIS [None]
  - UPPER RESPIRATORY TRACT INFECTION [None]
